FAERS Safety Report 19166251 (Version 1)
Quarter: 2021Q2

REPORT INFORMATION
  Report Type: Spontaneous
  Country: JP (occurrence: JP)
  Receive Date: 20210421
  Receipt Date: 20210421
  Transmission Date: 20210717
  Serious: Yes (Other)
  Sender: FDA-Public Use
  Company Number: JP-FERRINGPH-2021FE01657

PATIENT
  Age: 78 Year
  Sex: Male

DRUGS (3)
  1. TENELIA [Concomitant]
     Active Substance: TENELIGLIPTIN
     Route: 048
  2. MINIRINMELT [Suspect]
     Active Substance: DESMOPRESSIN ACETATE
     Indication: NOCTURIA
     Dosage: 50 UG
     Route: 048
     Dates: start: 20210115, end: 20210129
  3. FORXIGA [Concomitant]
     Active Substance: DAPAGLIFLOZIN
     Route: 048

REACTIONS (4)
  - Glomerular filtration rate decreased [Unknown]
  - Hyponatraemia [Recovered/Resolved]
  - Therapeutic response decreased [Unknown]
  - Drug monitoring procedure incorrectly performed [Unknown]

NARRATIVE: CASE EVENT DATE: 20210129
